FAERS Safety Report 8946927 (Version 1)
Quarter: 2012Q4

REPORT INFORMATION
  Report Type: 
  Country: US (occurrence: US)
  Receive Date: 20121205
  Receipt Date: 20121205
  Transmission Date: 20130627
  Serious: Yes (Other)
  Sender: FDA-Public Use
  Company Number: US-JNJFOC-20121201012

PATIENT
  Sex: Female

DRUGS (5)
  1. DOXORUBICIN [Suspect]
     Indication: BREAST CANCER
     Dosage: TAC arm for 6 cycles
     Route: 042
  2. DOCETAXEL [Suspect]
     Indication: BREAST CANCER
     Dosage: TAC arm for 6 cycles
     Route: 065
  3. CYCLOPHOSPHAMIDE [Suspect]
     Indication: BREAST CANCER
     Dosage: TAC arm for 6 cycles
     Route: 065
  4. PEGFILGRASTIM [Concomitant]
     Indication: PRODUCT USED FOR UNKNOWN INDICATION
     Route: 065
  5. FILGRASTIM [Concomitant]
     Indication: PRODUCT USED FOR UNKNOWN INDICATION
     Route: 065

REACTIONS (3)
  - Embolism [Unknown]
  - Thrombosis [Unknown]
  - Sepsis [Unknown]
